FAERS Safety Report 5222824-3 (Version None)
Quarter: 2007Q1

REPORT INFORMATION
  Report Type: 
  Country: None (occurrence: None)
  Receive Date: 20070129
  Receipt Date: 20070129
  Transmission Date: 20070707
  Serious: Yes (Death, Life-Threatening)
  Sender: FDA-Public Use
  Company Number: JP-JPN-A200605349

PATIENT
  Age: 68 Year
  Sex: Female
  Weight: 40 kg

DRUGS (6)
  1. ZOVIRAX [Suspect]
     Indication: ENCEPHALITIS HERPES
     Dosage: 200MG PER DAY
     Route: 042
     Dates: start: 20061201, end: 20061206
  2. CLARITHROMYCIN [Concomitant]
     Indication: PNEUMONIA
     Route: 048
     Dates: start: 20061117, end: 20061124
  3. PHENOBARBITAL TAB [Concomitant]
     Indication: CONVULSION
     Route: 030
     Dates: start: 20061115, end: 20061117
  4. FIRSTCIN [Concomitant]
     Indication: PNEUMONIA
     Dates: start: 20061116, end: 20061116
  5. PIPERACILLIN SODIUM [Concomitant]
     Indication: PNEUMONIA
     Dosage: 1G PER DAY
     Route: 042
     Dates: start: 20061117, end: 20061124
  6. MEROPEN [Concomitant]
     Indication: SEPTIC SHOCK
     Dosage: 2G PER DAY
     Route: 042
     Dates: start: 20061129, end: 20061227

REACTIONS (4)
  - DRUG ERUPTION [None]
  - LYMPHOCYTE STIMULATION TEST POSITIVE [None]
  - MULTI-ORGAN FAILURE [None]
  - SKIN EXFOLIATION [None]
